FAERS Safety Report 16845696 (Version 1)
Quarter: 2019Q3

REPORT INFORMATION
  Report Type: Report from Study
  Country: US (occurrence: US)
  Receive Date: 20190924
  Receipt Date: 20190924
  Transmission Date: 20191005
  Serious: Yes (Death, Hospitalization, Other)
  Sender: FDA-Public Use
  Company Number: PHEH2019US039316

PATIENT
  Age: 61 Year
  Sex: Male

DRUGS (1)
  1. COSENTYX [Suspect]
     Active Substance: SECUKINUMAB
     Indication: PSORIASIS
     Dosage: 300 MG, QMO
     Route: 058
     Dates: start: 20180515, end: 20190717

REACTIONS (6)
  - Pneumonia [Fatal]
  - Hepatic cirrhosis [Unknown]
  - Wound [Unknown]
  - Localised infection [Fatal]
  - Cardiac disorder [Unknown]
  - Addison^s disease [Unknown]
